FAERS Safety Report 13657462 (Version 3)
Quarter: 2023Q4

REPORT INFORMATION
  Report Type: Report from Study
  Country: US (occurrence: US)
  Receive Date: 20170615
  Receipt Date: 20231030
  Transmission Date: 20240109
  Serious: Yes (Other)
  Sender: FDA-Public Use
  Company Number: US-BRISTOL-MYERS SQUIBB COMPANY-BMS-2017-047286

PATIENT
  Age: 58 Year
  Sex: Female
  Weight: 98.865 kg

DRUGS (1)
  1. ORENCIA [Suspect]
     Active Substance: ABATACEPT
     Indication: Rheumatoid arthritis
     Dosage: 17.875 MILLIGRAM PER MILLILITRE 125 MILLIGRAM PER MILLILITRE 125 MG/ML, QWK
     Route: 058
     Dates: start: 201605

REACTIONS (2)
  - Device safety feature issue [Unknown]
  - Drug ineffective [Unknown]

NARRATIVE: CASE EVENT DATE: 20160501
